FAERS Safety Report 13328463 (Version 1)
Quarter: 2017Q1

REPORT INFORMATION
  Report Type: Spontaneous
  Country: US (occurrence: US)
  Receive Date: 20170313
  Receipt Date: 20170313
  Transmission Date: 20170428
  Serious: No
  Sender: FDA-Public Use
  Company Number: US-JNJFOC-20170204918

PATIENT
  Age: 30 Year
  Sex: Female
  Weight: 43.55 kg

DRUGS (3)
  1. SUDAFED 12 HOUR [Suspect]
     Active Substance: PSEUDOEPHEDRINE HYDROCHLORIDE
     Indication: SINUS CONGESTION
     Route: 048
     Dates: start: 20170130, end: 20170202
  2. FISH OIL [Concomitant]
     Active Substance: FISH OIL
     Indication: NUTRITIONAL SUPPLEMENTATION
     Dosage: 1 TEASPOON PER DAY, 2 MONTHS
     Route: 065
  3. SUDAFED 12 HOUR [Suspect]
     Active Substance: PSEUDOEPHEDRINE HYDROCHLORIDE
     Route: 048

REACTIONS (6)
  - Sneezing [Recovered/Resolved]
  - Dry mouth [Recovered/Resolved]
  - Feeling of body temperature change [Recovered/Resolved]
  - Heart rate increased [Recovered/Resolved]
  - Pruritus [Recovered/Resolved]
  - Insomnia [Recovered/Resolved]

NARRATIVE: CASE EVENT DATE: 20170202
